FAERS Safety Report 18512925 (Version 1)
Quarter: 2020Q4

REPORT INFORMATION
  Report Type: Report from Study
  Country: CA (occurrence: CA)
  Receive Date: 20201117
  Receipt Date: 20201117
  Transmission Date: 20210114
  Serious: Yes (Death, Other)
  Sender: FDA-Public Use
  Company Number: PHHY2017CA066460

PATIENT
  Age: 66 Year
  Sex: Male

DRUGS (4)
  1. TAFINLAR [Suspect]
     Active Substance: DABRAFENIB MESYLATE
     Dosage: 75 MG, BID
     Route: 048
     Dates: end: 20190610
  2. TAFINLAR [Suspect]
     Active Substance: DABRAFENIB MESYLATE
     Indication: METASTATIC MALIGNANT MELANOMA
     Dosage: 150 MG, BID
     Route: 048
     Dates: start: 20170425
  3. MEKINIST [Suspect]
     Active Substance: TRAMETINIB DIMETHYL SULFOXIDE
     Dosage: 1 MG, (2X0.5MG) QD
     Route: 048
     Dates: end: 20190610
  4. MEKINIST [Suspect]
     Active Substance: TRAMETINIB DIMETHYL SULFOXIDE
     Indication: METASTATIC MALIGNANT MELANOMA
     Dosage: 2 MG, UNK
     Route: 048
     Dates: start: 20170425, end: 20190610

REACTIONS (15)
  - Neoplasm skin [Recovered/Resolved]
  - Fatigue [Unknown]
  - Death [Fatal]
  - Taste disorder [Unknown]
  - Weight decreased [Unknown]
  - Gait disturbance [Unknown]
  - Headache [Unknown]
  - Hepatic enzyme increased [Unknown]
  - Decreased appetite [Unknown]
  - Pyrexia [Unknown]
  - Chills [Unknown]
  - Metastases to central nervous system [Unknown]
  - Arthralgia [Unknown]
  - Illness [Unknown]
  - Musculoskeletal stiffness [Unknown]

NARRATIVE: CASE EVENT DATE: 20190712
